FAERS Safety Report 13376202 (Version 1)
Quarter: 2017Q1

REPORT INFORMATION
  Report Type: Spontaneous
  Country: US (occurrence: US)
  Receive Date: 20170328
  Receipt Date: 20170328
  Transmission Date: 20170429
  Serious: No
  Sender: FDA-Public Use
  Company Number: US-BAYER-2017-058518

PATIENT
  Age: 45 Year
  Sex: Female
  Weight: 4.54 kg

DRUGS (1)
  1. MIRALAX [Suspect]
     Active Substance: POLYETHYLENE GLYCOL 3350
     Indication: GASTROINTESTINAL DISORDER
     Dosage: UNK
     Route: 048
     Dates: end: 201703

REACTIONS (6)
  - Off label use [Unknown]
  - Dry skin [Not Recovered/Not Resolved]
  - Product use issue [Unknown]
  - Wrong technique in product usage process [Unknown]
  - Vulvovaginal dryness [Not Recovered/Not Resolved]
  - Underdose [None]

NARRATIVE: CASE EVENT DATE: 2017
